FAERS Safety Report 6815073-6 (Version None)
Quarter: 2010Q2

REPORT INFORMATION
  Report Type: 
  Country: None (occurrence: None)
  Receive Date: 20100630
  Receipt Date: 20100630
  Transmission Date: 20101027
  Serious: No
  Sender: FDA-Public Use
  Company Number: None

PATIENT
  Sex: Female

DRUGS (2)
  1. FLUOXETINE [Suspect]
     Indication: ANXIETY
     Dosage: 20MG  DAILY ORAL
     Route: 048
     Dates: start: 20100601
  2. FLUOXETINE [Suspect]
     Indication: DEPRESSION
     Dosage: 20MG  DAILY ORAL
     Route: 048
     Dates: start: 20100601

REACTIONS (2)
  - ANXIETY [None]
  - PRODUCT SUBSTITUTION ISSUE [None]
